FAERS Safety Report 8290678-7 (Version None)
Quarter: 2012Q2

REPORT INFORMATION
  Report Type: 
  Country: None (occurrence: None)
  Receive Date: 20120417
  Receipt Date: 20110523
  Transmission Date: 20120825
  Serious: No
  Sender: FDA-Public Use
  Company Number: US-ASTRAZENECA-2011SE26329

PATIENT
  Age: 60 Year
  Sex: Female
  Weight: 50.8 kg

DRUGS (5)
  1. HYDROCHLOROTHIAZIDE [Concomitant]
  2. NEXIUM [Suspect]
     Route: 048
     Dates: start: 20080101
  3. POTASSIUM [Concomitant]
  4. LISINOPRIL [Concomitant]
  5. FENTANYL [Concomitant]

REACTIONS (2)
  - OSTEOPOROSIS [None]
  - TOOTH DISORDER [None]
